FAERS Safety Report 12366620 (Version 1)
Quarter: 2016Q2

REPORT INFORMATION
  Report Type: Spontaneous
  Country: GB (occurrence: GB)
  Receive Date: 20160513
  Receipt Date: 20160513
  Transmission Date: 20160815
  Serious: Yes (Hospitalization)
  Sender: FDA-Public Use
  Company Number: GB-PFIZER INC-2005150273

PATIENT
  Age: 43 Year
  Sex: Male

DRUGS (7)
  1. FOLIC ACID. [Suspect]
     Active Substance: FOLIC ACID
     Dosage: UNK
     Route: 048
  2. FLUOXETINE HCL [Suspect]
     Active Substance: FLUOXETINE HYDROCHLORIDE
     Dosage: 600 MG, UNK
     Route: 048
  3. PARACETAMOL [Suspect]
     Active Substance: ACETAMINOPHEN
     Indication: ILL-DEFINED DISORDER
     Dosage: 16 G, UNK
     Route: 048
  4. ASPIRIN /00002701/ [Suspect]
     Active Substance: ASPIRIN
     Indication: ILL-DEFINED DISORDER
     Dosage: 7.5 G, UNK
     Route: 048
  5. AMLODIPINE BESILATE [Suspect]
     Active Substance: AMLODIPINE BESYLATE
     Indication: ILL-DEFINED DISORDER
     Dosage: 10 MILLIG * 56 TABLETS
     Route: 048
  6. CITALOPRAM [Suspect]
     Active Substance: CITALOPRAM HYDROBROMIDE
     Indication: ILL-DEFINED DISORDER
     Dosage: 280 MG, UNK
     Route: 048
  7. PERINDOPRIL [Suspect]
     Active Substance: PERINDOPRIL
     Indication: ILL-DEFINED DISORDER
     Dosage: 120 MG, UNK
     Route: 048

REACTIONS (4)
  - Intentional overdose [Recovered/Resolved]
  - Hypotension [Recovered/Resolved]
  - Urine output decreased [Recovered/Resolved]
  - Coma scale abnormal [Recovered/Resolved]
